FAERS Safety Report 18547790 (Version 1)
Quarter: 2020Q4

REPORT INFORMATION
  Report Type: Spontaneous
  Country: None (occurrence: US)
  Receive Date: 20201126
  Receipt Date: 20201126
  Transmission Date: 20210114
  Serious: Yes (Hospitalization, Other)
  Sender: FDA-Public Use
  Company Number: US-LUPIN PHARMACEUTICALS INC.-2020-09382

PATIENT
  Age: 19 Year
  Sex: Male

DRUGS (4)
  1. OXYCODONE [Suspect]
     Active Substance: OXYCODONE
     Indication: PAIN
     Dosage: 330 MORPHINE MILLIGRAM EQUIVALENT
     Route: 065
  2. HYDROXYUREA. [Concomitant]
     Active Substance: HYDROXYUREA
     Indication: SICKLE CELL DISEASE
     Dosage: UNK
     Route: 065
  3. OXYCODONE [Suspect]
     Active Substance: OXYCODONE
     Dosage: 60 MILLIGRAM, QD, IMMEDIATE RELEASE
     Route: 065
  4. OXYCODONE [Suspect]
     Active Substance: OXYCODONE
     Dosage: 40 MILLIGRAM, TID, EXTENDED RELEASE
     Route: 065

REACTIONS (6)
  - Drug withdrawal syndrome [Unknown]
  - Pain [Unknown]
  - Hyperhidrosis [Unknown]
  - Chills [Unknown]
  - Condition aggravated [Unknown]
  - Yawning [Unknown]
